FAERS Safety Report 4826962-6 (Version None)
Quarter: 2005Q4

REPORT INFORMATION
  Report Type: 
  Country: None (occurrence: None)
  Receive Date: 20051114
  Receipt Date: 20051102
  Transmission Date: 20060501
  Serious: Yes (Hospitalization)
  Sender: FDA-Public Use
  Company Number: US-JNJFOC-20051101254

PATIENT
  Sex: Female

DRUGS (4)
  1. DITROPAN [Suspect]
     Route: 048
  2. DITROPAN [Suspect]
     Indication: BLADDER DISORDER
     Route: 048
  3. DESMOPRESSIN ACETATE [Suspect]
     Route: 048
  4. DESMOPRESSIN ACETATE [Suspect]
     Indication: BLADDER DISORDER
     Route: 048

REACTIONS (5)
  - ANOREXIA [None]
  - DIZZINESS [None]
  - NAUSEA [None]
  - RETCHING [None]
  - VOMITING [None]
